FAERS Safety Report 18173656 (Version 1)
Quarter: 2020Q3

REPORT INFORMATION
  Report Type: Spontaneous
  Country: DE (occurrence: DE)
  Receive Date: 20200820
  Receipt Date: 20200820
  Transmission Date: 20201103
  Serious: Yes (Hospitalization)
  Sender: FDA-Public Use
  Company Number: DE-TEVA-2020-DE-1815647

PATIENT
  Age: 64 Year
  Sex: Male

DRUGS (6)
  1. MIRTAZAPIN [Concomitant]
     Active Substance: MIRTAZAPINE
     Dosage: 15 MILLIGRAM DAILY;  0?0?0?1
  2. PANTOPRAZOL [Concomitant]
     Active Substance: PANTOPRAZOLE SODIUM
     Dosage: 40 MILLIGRAM DAILY; 1?0?0?0
  3. METOPROLOL. [Concomitant]
     Active Substance: METOPROLOL
     Dosage: 23.75 MILLIGRAM DAILY; 1?0?0?0
  4. DEXAMETHASON [Suspect]
     Active Substance: DEXAMETHASONE
     Dosage: 4 MILLIGRAM DAILY; 1?0?0?0
  5. ESCITALOPRAM [Concomitant]
     Active Substance: ESCITALOPRAM OXALATE
     Dosage: 20 MILLIGRAM DAILY; 1?0?0?0
  6. ZOPICLON [Concomitant]
     Active Substance: ZOPICLONE
     Dosage: 11.25 MILLIGRAM DAILY; 0?0?0?1

REACTIONS (3)
  - Inflammation [Recovering/Resolving]
  - Liver function test abnormal [Recovering/Resolving]
  - Abdominal pain [Recovering/Resolving]
